FAERS Safety Report 23713978 (Version 2)
Quarter: 2024Q3

REPORT INFORMATION
  Report Type: Other
  Country: DE (occurrence: DE)
  Receive Date: 20240405
  Receipt Date: 20240716
  Transmission Date: 20241016
  Serious: Yes (Life-Threatening, Hospitalization, Other)
  Sender: INCYTE
  Company Number: None

PATIENT

DRUGS (11)
  1. RUXOLITINIB [Suspect]
     Active Substance: RUXOLITINIB
     Indication: Polycythaemia vera
     Dosage: UNK
     Route: 065
  2. RUXOLITINIB [Suspect]
     Active Substance: RUXOLITINIB
     Dosage: UNK
     Route: 065
     Dates: end: 20240220
  3. IBUPROFEN [Suspect]
     Active Substance: IBUPROFEN
     Indication: Pain
     Dosage: 400 MG, (6X 400 MG ALS EINZELDOSIS)
     Route: 065
     Dates: end: 20240220
  4. PANTOPRAZOLE SODIUM [Concomitant]
     Active Substance: PANTOPRAZOLE SODIUM
     Indication: Gastrointestinal disorder
     Dosage: 40 MG, QD (1X DAILY, 1-0-0)
     Route: 048
  5. MELATONIN [Concomitant]
     Active Substance: MELATONIN
     Indication: Product used for unknown indication
     Dosage: 2 MG (0-0-0-1)
     Route: 048
  6. FOLIC ACID [Concomitant]
     Active Substance: FOLIC ACID
     Indication: Product used for unknown indication
     Dosage: 5 MG, QW
     Route: 048
  7. CHOLECALCIFEROL [Concomitant]
     Active Substance: CHOLECALCIFEROL
     Indication: Product used for unknown indication
     Dosage: 20000 IU, QW
     Route: 048
  8. CHOLECALCIFEROL [Concomitant]
     Active Substance: CHOLECALCIFEROL
     Indication: Product used for unknown indication
     Dosage: 20000 IU, QW (1X WEEKLY ON SUNDAYS)
     Route: 048
  9. FOLIC ACID\IRON [Concomitant]
     Active Substance: FOLIC ACID\IRON
     Indication: Product used for unknown indication
     Dosage: 5 MG, QW (1X WEEKLY ON SUNDAYS)
     Route: 048
  10. METOPROLOL [Concomitant]
     Active Substance: METOPROLOL
     Indication: Product used for unknown indication
     Dosage: 23.75 MG, BID (1-0-1)
     Route: 065
  11. SACCHAROMYCES CEREVISIAE [Concomitant]
     Active Substance: SACCHAROMYCES CEREVISIAE
     Indication: Product used for unknown indication
     Dosage: 375 MG, BID (1-0-1) (DRY YEAST)
     Route: 065

REACTIONS (40)
  - Atrial fibrillation [Unknown]
  - Acute kidney injury [Recovering/Resolving]
  - Hypertension [Unknown]
  - Atrioventricular block [Unknown]
  - Clostridium difficile colitis [Unknown]
  - Contusion [Unknown]
  - Cardiac failure [Unknown]
  - Depression [Unknown]
  - Ejection fraction [Recovering/Resolving]
  - Gastrointestinal sounds abnormal [Unknown]
  - Femoral neck fracture [Unknown]
  - Small intestinal obstruction [Unknown]
  - Hydrocholecystis [Unknown]
  - Hepatomegaly [Unknown]
  - Humerus fracture [Unknown]
  - Hyperkalaemia [Recovering/Resolving]
  - Metabolic acidosis [Unknown]
  - Bundle branch block left [Unknown]
  - Hepatic cyst [Unknown]
  - Hepatic steatosis [Unknown]
  - Mitral valve incompetence [Unknown]
  - Tricuspid valve incompetence [Unknown]
  - Dyspnoea [Unknown]
  - Mitral valve sclerosis [Unknown]
  - Aortic valve incompetence [Unknown]
  - Aortic arteriosclerosis [Unknown]
  - Urinary tract obstruction [Unknown]
  - Mucosal dryness [Unknown]
  - Skin abrasion [Unknown]
  - Osteopenia [Unknown]
  - Pleural effusion [Recovering/Resolving]
  - Pneumonia [Unknown]
  - Polyuria [Unknown]
  - Abdominal discomfort [Unknown]
  - Fall [Unknown]
  - Renal cyst [Unknown]
  - Back pain [Unknown]
  - General physical health deterioration [Unknown]
  - Gastrointestinal wall thickening [Unknown]
  - Urinary retention [Recovered/Resolved]

NARRATIVE: CASE EVENT DATE: 20231201
